FAERS Safety Report 25026095 (Version 6)
Quarter: 2025Q2

REPORT INFORMATION
  Report Type: Spontaneous
  Country: CA (occurrence: CA)
  Receive Date: 20250301
  Receipt Date: 20250506
  Transmission Date: 20250716
  Serious: Yes (Hospitalization, Other)
  Sender: CELLTRION
  Company Number: CA-PFIZER INC-202500041786

PATIENT

DRUGS (25)
  1. INFLECTRA [Suspect]
     Active Substance: INFLIXIMAB-DYYB
     Indication: Colitis ulcerative
     Route: 042
     Dates: start: 20250115, end: 20250115
  2. INFLECTRA [Suspect]
     Active Substance: INFLIXIMAB-DYYB
     Route: 042
     Dates: start: 20250324
  3. INFLECTRA [Suspect]
     Active Substance: INFLIXIMAB-DYYB
     Route: 042
     Dates: start: 20250428
  4. ASPIRIN [Concomitant]
     Active Substance: ASPIRIN
  5. AMLODIPINE [Concomitant]
     Active Substance: AMLODIPINE BESYLATE
  6. ATORVASTATIN [Concomitant]
     Active Substance: ATORVASTATIN
  7. BETAHISTINE [Concomitant]
     Active Substance: BETAHISTINE
  8. COLESEVELAM [Concomitant]
     Active Substance: COLESEVELAM
  9. CHOLESTYRAMINE [Concomitant]
     Active Substance: CHOLESTYRAMINE
  10. FOLIC ACID [Concomitant]
     Active Substance: FOLIC ACID
  11. FINASTERIDE [Concomitant]
     Active Substance: FINASTERIDE
  12. FUROSEMIDE [Concomitant]
     Active Substance: FUROSEMIDE
  13. FLOVENT [Concomitant]
     Active Substance: FLUTICASONE PROPIONATE
  14. GLARINE [Concomitant]
  15. INSULIN GLULISINE [Concomitant]
     Active Substance: INSULIN GLULISINE
  16. KETODERM [Concomitant]
  17. METHOTREXATE [Concomitant]
     Active Substance: METHOTREXATE
     Route: 048
  18. METHOTREXATE [Concomitant]
     Active Substance: METHOTREXATE
     Dosage: 15 MG, WEEKLY
  19. NITROGLYCERIN [Concomitant]
     Active Substance: NITROGLYCERIN
  20. PANTOPRAZOLE [Concomitant]
     Active Substance: PANTOPRAZOLE
  21. PREGABALIN [Concomitant]
     Active Substance: PREGABALIN
     Route: 048
  22. PERINDOPRIL [Concomitant]
     Active Substance: PERINDOPRIL
  23. SILDENAFIL [Concomitant]
     Active Substance: SILDENAFIL
  24. ALBUTEROL [Concomitant]
     Active Substance: ALBUTEROL
  25. TAMSULOSIN [Concomitant]
     Active Substance: TAMSULOSIN

REACTIONS (11)
  - Haematochezia [Unknown]
  - Pulmonary thrombosis [Unknown]
  - Pulmonary embolism [Unknown]
  - Pleural effusion [Not Recovered/Not Resolved]
  - Lymphadenopathy [Not Recovered/Not Resolved]
  - Asbestosis [Not Recovered/Not Resolved]
  - Pneumonia [Recovered/Resolved]
  - Weight decreased [Not Recovered/Not Resolved]
  - Pain [Not Recovered/Not Resolved]
  - Condition aggravated [Recovering/Resolving]
  - Fungal skin infection [Unknown]

NARRATIVE: CASE EVENT DATE: 20250301
